FAERS Safety Report 18313966 (Version 2)
Quarter: 2020Q4

REPORT INFORMATION
  Report Type: Spontaneous
  Country: HU (occurrence: HU)
  Receive Date: 20200925
  Receipt Date: 20201001
  Transmission Date: 20210113
  Serious: Yes (Other)
  Sender: FDA-Public Use
  Company Number: NVSC2020HU253773

PATIENT
  Age: 33 Year
  Sex: Male
  Weight: 82 kg

DRUGS (6)
  1. METHOTREXATE. [Suspect]
     Active Substance: METHOTREXATE
     Dosage: 10 MG, QW
     Route: 048
     Dates: end: 201108
  2. ISONIAZIDE [Concomitant]
     Active Substance: ISONIAZID
     Indication: PRODUCT USED FOR UNKNOWN INDICATION
     Dosage: UNK
     Route: 065
  3. SECUKINUMAB. [Suspect]
     Active Substance: SECUKINUMAB
     Indication: PRODUCT USED FOR UNKNOWN INDICATION
     Dosage: UNK UNK, UNKNOWN
     Route: 065
  4. HUMIRA [Concomitant]
     Active Substance: ADALIMUMAB
     Indication: PRODUCT USED FOR UNKNOWN INDICATION
     Dosage: UNK
     Route: 065
     Dates: start: 2012
  5. SANDIMMUN [Suspect]
     Active Substance: CYCLOSPORINE
     Indication: PRODUCT USED FOR UNKNOWN INDICATION
     Dosage: 100 MG, OTHER (3XDAILY)
     Route: 048
     Dates: start: 201108, end: 201205
  6. METHOTREXATE. [Suspect]
     Active Substance: METHOTREXATE
     Indication: PRODUCT USED FOR UNKNOWN INDICATION
     Dosage: 7.5 MG, QW
     Route: 048
     Dates: start: 201105

REACTIONS (19)
  - Hair growth abnormal [Unknown]
  - Vomiting [Unknown]
  - Psoriatic arthropathy [Unknown]
  - Gastric disorder [Unknown]
  - Psoriasis area severity index increased [Recovered/Resolved]
  - Tooth infection [Unknown]
  - Spinal pain [Recovered/Resolved]
  - Ligament sprain [Unknown]
  - Skin plaque [Recovered/Resolved]
  - Blood pressure increased [Unknown]
  - Drug ineffective [Unknown]
  - Intervertebral disc protrusion [Recovering/Resolving]
  - Depression [Unknown]
  - Arthropathy [Recovered/Resolved]
  - Alopecia [Unknown]
  - Psoriasis [Recovered/Resolved]
  - Nausea [Unknown]
  - Scoliosis [Unknown]
  - Body surface area increased [Unknown]

NARRATIVE: CASE EVENT DATE: 2011
